FAERS Safety Report 16824168 (Version 5)
Quarter: 2021Q4

REPORT INFORMATION
  Report Type: Spontaneous
  Country: DE (occurrence: DE)
  Receive Date: 20190918
  Receipt Date: 20211028
  Transmission Date: 20220304
  Serious: Yes (Death, Hospitalization, Other)
  Sender: FDA-Public Use
  Company Number: DE-NOVPHSZ-PHHY2018DE101439

PATIENT
  Age: 77 Year
  Sex: Male
  Weight: 76 kg

DRUGS (26)
  1. VALSARTAN [Suspect]
     Active Substance: VALSARTAN
     Indication: Hypertension
     Dosage: 80 OT, UNK
     Route: 048
  2. HYDROCHLOROTHIAZIDE\VALSARTAN [Suspect]
     Active Substance: HYDROCHLOROTHIAZIDE\VALSARTAN
     Indication: Product used for unknown indication
     Dosage: UNK (VALSARTAN 160/ HYDROCHLOROTHIAZIDE12.5)// START DATE: 12-JUL-2012
     Route: 065
     Dates: end: 20180727
  3. HYDROCHLOROTHIAZIDE\VALSARTAN [Suspect]
     Active Substance: HYDROCHLOROTHIAZIDE\VALSARTAN
     Indication: Hypertension
     Dosage: START DATE: 16-FEB-2012
     Route: 065
  4. ACTRAPID [Concomitant]
     Active Substance: INSULIN HUMAN
     Indication: Blood glucose abnormal
     Dosage: 100 INTERNATIONAL UNIT PER MILLILITRE/ START DATE: DEC-2015
     Route: 065
  5. HYDROCHLOROTHIAZIDE [Concomitant]
     Active Substance: HYDROCHLOROTHIAZIDE
     Indication: Product used for unknown indication
     Dosage: 12.5 MG, QD (1-0-0-0)
     Route: 065
  6. PROTAPHANE [Concomitant]
     Active Substance: INSULIN HUMAN
     Indication: Blood glucose abnormal
     Dosage: 100 INTERNATIONAL UNIT PER MILLILITRE (15 IE AT 6 AM AND AT 10 PM)
     Route: 065
     Dates: start: 200103
  7. INSULIN HUMAN [Concomitant]
     Active Substance: INSULIN HUMAN
     Indication: Product used for unknown indication
     Dosage: UNK UNK, BID,15-0-0-15
     Route: 058
  8. METOPROLOL SUCCINATE [Concomitant]
     Active Substance: METOPROLOL SUCCINATE
     Indication: Product used for unknown indication
     Dosage: 95 MILLIGRAM, QD, 47.5 MG, BID (1-0-1-0)
     Route: 065
  9. DICLOFENAC SODIUM [Concomitant]
     Active Substance: DICLOFENAC SODIUM
     Indication: Product used for unknown indication
     Dosage: 200 MILLIGRAM, QD,50 MG, QID (MAX. 4TIME DAILY)
     Route: 065
  10. TORSEMIDE [Concomitant]
     Active Substance: TORSEMIDE
     Indication: Product used for unknown indication
     Dosage: 5 MG, QD
     Route: 065
  11. VALSARTAN [Concomitant]
     Active Substance: VALSARTAN
     Indication: Product used for unknown indication
     Dosage: 80 MILLIGRAM, QD, 40 MG, BID (2-0-0-0)
     Route: 065
  12. INSULIN HUMAN [Concomitant]
     Active Substance: INSULIN HUMAN
     Indication: Product used for unknown indication
     Dosage: UNK, BID (8-0-10)
     Route: 065
  13. PANTOPRAZOLE [Concomitant]
     Active Substance: PANTOPRAZOLE
     Indication: Product used for unknown indication
     Dosage: 40 MG, QD (0-0-1-0)
     Route: 065
  14. VALSARTAN AND HYDROCHLOROTHIAZIDE [Concomitant]
     Active Substance: HYDROCHLOROTHIAZIDE\VALSARTAN
     Indication: Hypertension
     Dosage: 1 DF, QD (1/2-0-0, DAILY)
     Route: 058
  15. VALSARTAN AND HYDROCHLOROTHIAZIDE [Concomitant]
     Active Substance: HYDROCHLOROTHIAZIDE\VALSARTAN
     Dosage: 0.5 DF, QD (1/2-0-0)
     Route: 058
  16. METAMIZOLE [Concomitant]
     Active Substance: METAMIZOLE
     Indication: Product used for unknown indication
     Dosage: 160 GTT DROPS, QD, 40 DRP, QID
     Route: 065
  17. METOPROLOL [Concomitant]
     Active Substance: METOPROLOL
     Indication: Product used for unknown indication
     Dosage: 100 MILLIGRAM,100 MG (?-0-?)
     Route: 048
  18. METOPROLOL [Concomitant]
     Active Substance: METOPROLOL
     Dosage: 100 MILLIGRAM, QD
     Route: 048
     Dates: start: 2000
  19. BRINZOLAMIDE [Concomitant]
     Active Substance: BRINZOLAMIDE
     Indication: Product used for unknown indication
     Dosage: UNK UNK, BID, 1-0-1
     Route: 065
  20. TORSEMIDE [Concomitant]
     Active Substance: TORSEMIDE
     Indication: Product used for unknown indication
     Dosage: 0.5 DOSAGE FORM, QD (1/2-0-0)/ START DATE: FEB-2018
     Route: 065
  21. ACETAMINOPHEN [Concomitant]
     Active Substance: ACETAMINOPHEN
     Indication: Product used for unknown indication
     Dosage: 500 MG, (1-2 TABLETS UP TO 4TIMES PER DAY)
     Route: 065
  22. AZOPT [Concomitant]
     Active Substance: BRINZOLAMIDE
     Indication: Product used for unknown indication
     Dosage: 10 MG/ML, (1 EVERY 15 MINUTES)
     Route: 065
  23. TORSEMIDE [Concomitant]
     Active Substance: TORSEMIDE
     Indication: Product used for unknown indication
     Dosage: 5 MG, QD (1-0-0-0)
     Route: 065
  24. MCP AL [Concomitant]
     Indication: Product used for unknown indication
     Dosage: 30 MILLIGRAM, QD, 10 MG, TID (1-1-1-0))
  25. DEXAMETHASONE SODIUM PHOSPHATE [Concomitant]
     Active Substance: DEXAMETHASONE SODIUM PHOSPHATE
     Indication: Product used for unknown indication
     Dosage: 12 MILLIGRAM, QD, 4 MG, TID (1-1-1-0)/START DATE:28-JAN-2019
  26. AFATINIB DIMALEATE [Concomitant]
     Active Substance: AFATINIB DIMALEATE
     Indication: Product used for unknown indication
     Dosage: 20 MILLIGRAM, QOD

REACTIONS (20)
  - Dyspnoea [Fatal]
  - Bronchial carcinoma [Fatal]
  - Effusion [Fatal]
  - Malignant pleural effusion [Fatal]
  - Malignant neoplasm of pleura [Fatal]
  - Dyspnoea exertional [Fatal]
  - Breath sounds abnormal [Fatal]
  - Aspiration pleural cavity [Fatal]
  - General physical health deterioration [Fatal]
  - Asthenia [Fatal]
  - Pleural effusion [Fatal]
  - Feeling abnormal [Unknown]
  - Left ventricular dysfunction [Unknown]
  - Pneumothorax [Unknown]
  - Chilaiditi^s syndrome [Unknown]
  - Ventricular hypokinesia [Unknown]
  - Cardiac aneurysm [Unknown]
  - Coordination abnormal [Recovered/Resolved]
  - Balance disorder [Unknown]
  - Metastases to central nervous system [Unknown]

NARRATIVE: CASE EVENT DATE: 20180101
